FAERS Safety Report 18057572 (Version 1)
Quarter: 2020Q3

REPORT INFORMATION
  Report Type: Report from Study
  Country: CA (occurrence: CA)
  Receive Date: 20200723
  Receipt Date: 20200723
  Transmission Date: 20201103
  Serious: Yes (Other)
  Sender: FDA-Public Use
  Company Number: CA-AMGEN-CANSL2020114724

PATIENT
  Age: 73 Year
  Sex: Female

DRUGS (8)
  1. LIPITOR [Concomitant]
     Active Substance: ATORVASTATIN CALCIUM
  2. PANTOPRAZOLE [Concomitant]
     Active Substance: PANTOPRAZOLE
  3. PROLIA [Suspect]
     Active Substance: DENOSUMAB
     Indication: PRODUCT USED FOR UNKNOWN INDICATION
     Dosage: UNK
     Route: 065
  4. EFFEXOR [Concomitant]
     Active Substance: VENLAFAXINE HYDROCHLORIDE
  5. TAMOXIFEN [Concomitant]
     Active Substance: TAMOXIFEN
  6. CLONIDINE. [Concomitant]
     Active Substance: CLONIDINE
  7. SALAGEN [Concomitant]
     Active Substance: PILOCARPINE HYDROCHLORIDE
  8. EYE DROPS [NAPHAZOLINE HYDROCHLORIDE] [Concomitant]

REACTIONS (2)
  - Tooth abscess [Not Recovered/Not Resolved]
  - Tooth disorder [Unknown]

NARRATIVE: CASE EVENT DATE: 201912
